FAERS Safety Report 4803329-8 (Version None)
Quarter: 2005Q4

REPORT INFORMATION
  Report Type: 
  Country: None (occurrence: None)
  Receive Date: 20051019
  Receipt Date: 20050912
  Transmission Date: 20060501
  Serious: Yes (Death, Hospitalization)
  Sender: FDA-Public Use
  Company Number: PHBS2005JP13592

PATIENT
  Age: 58 Year
  Sex: Female
  Weight: 83 kg

DRUGS (12)
  1. AREDIA [Suspect]
     Indication: METASTASES TO BONE
     Dosage: 45 MG, TIW
     Route: 042
     Dates: start: 20030925, end: 20040317
  2. AREDIA [Suspect]
     Dosage: 90 MG
     Route: 042
     Dates: start: 20050407, end: 20050428
  3. TAXOTERE [Concomitant]
     Indication: METASTASES TO BONE
     Dosage: 107 MG, TIW
     Route: 042
     Dates: start: 20030925, end: 20040108
  4. XELODA [Concomitant]
     Indication: BREAST CANCER
     Dosage: 5 DF, BID
     Route: 048
     Dates: start: 20040209
  5. PROGESTON WYETH [Concomitant]
     Indication: BREAST CANCER
     Route: 048
     Dates: start: 20040520, end: 20041220
  6. VOLTAREN - SLOW RELEASE ^CIBA-GEIGY^ [Concomitant]
     Indication: BONE PAIN
     Route: 048
     Dates: start: 20040129
  7. INTEBAN [Concomitant]
     Indication: BACK PAIN
     Route: 061
     Dates: start: 20041221, end: 20041228
  8. THERARUBICIN [Concomitant]
     Indication: BREAST CANCER
     Dosage: 60 MG/D
     Route: 042
     Dates: start: 20050428, end: 20050609
  9. ENDOXAN [Concomitant]
     Indication: BREAST CANCER
     Dosage: 500 MG/D
     Route: 042
     Dates: start: 20050428, end: 20050609
  10. LOBU [Concomitant]
     Indication: BONE PAIN
     Route: 048
     Dates: start: 20040129
  11. DIOVAN [Concomitant]
     Indication: HYPERTENSION
     Dosage: 80 MG/D
     Route: 048
     Dates: start: 20010918
  12. NORVASC [Concomitant]
     Indication: HYPERTENSION
     Dosage: 10 MG/D
     Route: 048
     Dates: start: 20010918

REACTIONS (11)
  - BONE PAIN [None]
  - BREAST CANCER [None]
  - DYSGEUSIA [None]
  - GINGIVAL DISORDER [None]
  - HEADACHE [None]
  - HYPOAESTHESIA [None]
  - HYPOAESTHESIA ORAL [None]
  - HYPOGEUSIA [None]
  - METASTASES TO CENTRAL NERVOUS SYSTEM [None]
  - METASTASES TO LIVER [None]
  - PAIN [None]
